FAERS Safety Report 12710411 (Version 4)
Quarter: 2020Q2

REPORT INFORMATION
  Report Type: Spontaneous
  Country: US (occurrence: US)
  Receive Date: 20160902
  Receipt Date: 20200402
  Transmission Date: 20200713
  Serious: No
  Sender: FDA-Public Use
  Company Number: US-PFIZER INC-2016311865

PATIENT
  Age: 68 Year
  Sex: Male

DRUGS (13)
  1. METOPROLOL TARTRATE. [Concomitant]
     Active Substance: METOPROLOL TARTRATE
     Dosage: 25 MG, 2X/DAY
     Route: 048
     Dates: start: 20160519
  2. METFORMIN HCL [Concomitant]
     Active Substance: METFORMIN HYDROCHLORIDE
     Dosage: 1000 MG, 2X/DAY
     Route: 048
     Dates: start: 20121011
  3. INSULIN [Concomitant]
     Active Substance: INSULIN NOS
     Dosage: UNK
     Dates: start: 20160519
  4. ATORVASTATIN CALCIUM. [Concomitant]
     Active Substance: ATORVASTATIN CALCIUM
     Indication: BLOOD CHOLESTEROL INCREASED
     Dosage: 40 MG, DAILY
     Route: 048
     Dates: start: 20150529
  5. LYRICA [Suspect]
     Active Substance: PREGABALIN
     Indication: NEURALGIA
     Dosage: 100 MG, 3X/DAY
     Route: 048
     Dates: start: 20160224
  6. LYRICA [Suspect]
     Active Substance: PREGABALIN
     Dosage: 1 DF, 4X/DAY
     Route: 048
  7. LEVOTHYROXINE SODIUM. [Concomitant]
     Active Substance: LEVOTHYROXINE SODIUM
     Indication: THYROID DISORDER
     Dosage: 175 UG, DAILY(1 TABLET DAILY ON EMPTY STOMACH)
     Route: 048
     Dates: start: 20131017
  8. INSULIN [Concomitant]
     Active Substance: INSULIN NOS
     Indication: DIABETES MELLITUS
     Dosage: UNK
     Dates: start: 20160506
  9. LYRICA [Suspect]
     Active Substance: PREGABALIN
     Dosage: 200 MG, AS NEEDED (1 TABLET TID) (1 CAP PO TID PRN)
     Route: 048
  10. ASPIRIN. [Concomitant]
     Active Substance: ASPIRIN
     Dosage: 81 MG, DAILY
     Route: 048
     Dates: start: 20151023
  11. RELION/NOVOLIN [Concomitant]
     Dosage: 100 IU/ML, UNK (RELION: 70/NOVOLIN: 30) (30 UNITS IN THE MORNING AND 30 AT NIGHT)
     Route: 058
     Dates: start: 20151203
  12. CELEXA [Concomitant]
     Active Substance: CITALOPRAM HYDROBROMIDE
     Indication: DEPRESSION
     Dosage: 10 MG, DAILY
     Route: 048
     Dates: start: 20160519
  13. METOPROLOL TARTRATE. [Concomitant]
     Active Substance: METOPROLOL TARTRATE
     Dosage: 50 MG, 2X/DAY
     Route: 048
     Dates: start: 20121011

REACTIONS (4)
  - Gait disturbance [Unknown]
  - Pain in extremity [Unknown]
  - Intentional product misuse [Unknown]
  - Product use issue [Unknown]
